FAERS Safety Report 9166004 (Version 1)
Quarter: 2013Q1

REPORT INFORMATION
  Report Type: Spontaneous
  Country: CN (occurrence: CN)
  Receive Date: 20130315
  Receipt Date: 20130315
  Transmission Date: 20140127
  Serious: Yes (Other)
  Sender: FDA-Public Use
  Company Number: CN-GLAXOSMITHKLINE-B0869928A

PATIENT
  Age: 40 Year
  Sex: Male

DRUGS (1)
  1. HEPTODIN [Suspect]
     Indication: CHRONIC HEPATITIS B
     Dosage: 100MG PER DAY
     Route: 048
     Dates: start: 201204

REACTIONS (4)
  - Immunodeficiency [Not Recovered/Not Resolved]
  - Joint adhesion [Not Recovered/Not Resolved]
  - Gallbladder polyp [Not Recovered/Not Resolved]
  - Sensory disturbance [Not Recovered/Not Resolved]
